FAERS Safety Report 8547061-6 (Version None)
Quarter: 2012Q3

REPORT INFORMATION
  Report Type: 
  Country: None (occurrence: None)
  Receive Date: 20120727
  Receipt Date: 20120213
  Transmission Date: 20120928
  Serious: No
  Sender: FDA-Public Use
  Company Number: US-ASTRAZENECA-2012SE09546

PATIENT
  Age: 51 Year
  Sex: Female
  Weight: 122.5 kg

DRUGS (7)
  1. HIGH BLOOD PRESSURE MEDICINES [Concomitant]
  2. SEROQUEL XR [Suspect]
     Indication: BIPOLAR DISORDER
     Route: 048
  3. SEROQUEL XR [Suspect]
     Route: 048
  4. CHOLESTEROL MEDICATIONS [Concomitant]
  5. SEROQUEL XR [Suspect]
     Route: 048
  6. XELEXA [Concomitant]
  7. THYROID MEDICATION [Concomitant]

REACTIONS (10)
  - NASOPHARYNGITIS [None]
  - WEIGHT INCREASED [None]
  - BLOOD CHOLESTEROL ABNORMAL [None]
  - MANIA [None]
  - WEIGHT DECREASED [None]
  - THYROID DISORDER [None]
  - HYPERTENSION [None]
  - TACHYPHRENIA [None]
  - MULTIPLE ALLERGIES [None]
  - INSOMNIA [None]
